FAERS Safety Report 21687454 (Version 2)
Quarter: 2023Q2

REPORT INFORMATION
  Report Type: Spontaneous
  Country: US (occurrence: US)
  Receive Date: 20221206
  Receipt Date: 20230523
  Transmission Date: 20230722
  Serious: Yes (Other)
  Sender: FDA-Public Use
  Company Number: US-PHARMING-PHAUS2022000831

PATIENT

DRUGS (2)
  1. RUCONEST [Suspect]
     Active Substance: HUMAN C1-ESTERASE INHIBITOR
     Indication: Hereditary angioedema
     Dosage: 4200 IU, AS NEEDED
     Route: 042
     Dates: start: 20210303
  2. RUCONEST [Suspect]
     Active Substance: HUMAN C1-ESTERASE INHIBITOR
     Indication: Hereditary angioedema

REACTIONS (5)
  - Gestational diabetes [Unknown]
  - Pharyngeal swelling [Recovered/Resolved]
  - Complication of pregnancy [Unknown]
  - Maternal exposure during pregnancy [Unknown]
  - Condition aggravated [Unknown]
